FAERS Safety Report 4621293-1 (Version None)
Quarter: 2005Q1

REPORT INFORMATION
  Report Type: 
  Country: None (occurrence: None)
  Receive Date: 20050329
  Receipt Date: 20050321
  Transmission Date: 20050727
  Serious: Yes (Other)
  Sender: FDA-Public Use
  Company Number: BW-BOEHRINGER INGELHEIM PHARMACEUTICALS, INC.-2005-BP-04534BP

PATIENT
  Sex: Female

DRUGS (3)
  1. VIRAMUNE [Suspect]
     Indication: HIV INFECTION
     Route: 048
     Dates: start: 20040427
  2. DIDANOSINE [Suspect]
     Indication: HIV INFECTION
     Dates: start: 20040427
  3. ZIDOVUDINE [Suspect]
     Indication: HIV INFECTION
     Dates: start: 20040427

REACTIONS (1)
  - BLOOD AMYLASE INCREASED [None]
